FAERS Safety Report 19738212 (Version 2)
Quarter: 2021Q4

REPORT INFORMATION
  Report Type: Spontaneous
  Country: DE (occurrence: DE)
  Receive Date: 20210824
  Receipt Date: 20211011
  Transmission Date: 20220303
  Serious: Yes (Death, Hospitalization, Other)
  Sender: FDA-Public Use
  Company Number: DE-ADRED-07013-01

PATIENT
  Age: 76 Year
  Sex: Female

DRUGS (14)
  1. PREDNISOLONE [Concomitant]
     Active Substance: PREDNISOLONE
     Dosage: 5 MG, 1-0-0-0
  2. ATORVASTATIN [Concomitant]
     Active Substance: ATORVASTATIN
     Dosage: 40 MG, 0-0-1-0
  3. ASPIRIN [Suspect]
     Active Substance: ASPIRIN
     Dosage: 100 MG, 1-0-0-0
  4. FLUCONAZOLE [Concomitant]
     Active Substance: FLUCONAZOLE
     Dosage: 200 MG, BEDARF
  5. GRANISETRON [Concomitant]
     Active Substance: GRANISETRON
     Dosage: 2 MG, BEDARF
  6. Levothyroxine-Natrium [Concomitant]
     Dosage: 75 +#181;G, 1-0-0-0
  7. CANDESARTAN [Concomitant]
     Active Substance: CANDESARTAN
     Dosage: 8 MG, 1-0-0-0
  8. DOXORUBICIN [Suspect]
     Active Substance: DOXORUBICIN
     Dosage: SCHEMA
  9. CARBOPLATIN [Suspect]
     Active Substance: CARBOPLATIN
     Dosage: SCHEMA
  10. DEXAMETHASONE [Suspect]
     Active Substance: DEXAMETHASONE
     Dosage: 4 MG, BEDARF
  11. METOCLOPRAMIDE [Concomitant]
     Active Substance: METOCLOPRAMIDE
     Dosage: BEDARF
  12. CIPROFLOXACIN [Concomitant]
     Active Substance: CIPROFLOXACIN
     Dosage: 250 MG, BEDARF
  13. ACYCLOVIR [Concomitant]
     Active Substance: ACYCLOVIR
     Dosage: BEDARF
  14. METAMIZOL [Concomitant]
     Active Substance: METAMIZOLE SODIUM
     Dosage: BEDARF

REACTIONS (6)
  - Abdominal distension [Unknown]
  - Tachypnoea [Unknown]
  - Nausea [Unknown]
  - Vomiting [Unknown]
  - General physical health deterioration [Unknown]
  - Haematochezia [Unknown]
